FAERS Safety Report 8109702-7 (Version None)
Quarter: 2012Q1

REPORT INFORMATION
  Report Type: 
  Country: None (occurrence: None)
  Receive Date: 20120202
  Receipt Date: 20120118
  Transmission Date: 20120608
  Serious: No
  Sender: FDA-Public Use
  Company Number: US-AMGEN-USASP2012003726

PATIENT
  Sex: Female

DRUGS (6)
  1. CALCIUM [Concomitant]
     Dosage: UNK
  2. VITAMIN D [Concomitant]
     Dosage: UNK
  3. ALENDRONATE SODIUM [Concomitant]
     Dosage: UNK
  4. MAGNESIUM [Concomitant]
     Dosage: UNK
  5. ENBREL [Suspect]
     Indication: PRODUCT USED FOR UNKNOWN INDICATION
     Dosage: 25 MG, 2 TIMES/WK
  6. ZAFIRLUKAST [Concomitant]
     Dosage: UNK

REACTIONS (4)
  - HYPERSENSITIVITY [None]
  - FOOT FRACTURE [None]
  - OSTEOPOROSIS [None]
  - HOT FLUSH [None]
